FAERS Safety Report 4634408-6 (Version None)
Quarter: 2005Q2

REPORT INFORMATION
  Report Type: 
  Country: None (occurrence: None)
  Receive Date: 20050411
  Receipt Date: 20050330
  Transmission Date: 20051028
  Serious: Yes (Hospitalization, Other)
  Sender: FDA-Public Use
  Company Number: HQWYE103214MAR05

PATIENT
  Age: 54 Year
  Sex: Female

DRUGS (2)
  1. RHINADVIL (IBUPROFEN/PSEUDOEPHEDRINE HYDROCHLORIDE, TABLET) [Suspect]
     Indication: INFLUENZA
     Dosage: 3 TABLET 1X PER 1 DAY
     Route: 048
     Dates: start: 20050127, end: 20050130
  2. PRIMALAN (MEQUITAZINE) [Concomitant]

REACTIONS (11)
  - ARTERIAL THROMBOSIS LIMB [None]
  - CHILLBLAINS [None]
  - CONDITION AGGRAVATED [None]
  - CONNECTIVE TISSUE INFLAMMATION [None]
  - CYANOSIS [None]
  - ERGOT POISONING [None]
  - EXTRAVASATION [None]
  - HAEMORRHAGE [None]
  - NECROSIS ISCHAEMIC [None]
  - PURPURA [None]
  - RAYNAUD'S PHENOMENON [None]
